FAERS Safety Report 4320172-7 (Version None)
Quarter: 2004Q1

REPORT INFORMATION
  Report Type: 
  Country: None (occurrence: None)
  Receive Date: 20040317
  Receipt Date: 20040303
  Transmission Date: 20041129
  Serious: Yes (Life-Threatening)
  Sender: FDA-Public Use
  Company Number: ZANA001143

PATIENT
  Age: 47 Year
  Sex: Female

DRUGS (2)
  1. TIZANIDINE HCL [Suspect]
     Indication: CERVICAL ROOT PAIN
     Dosage: 2 MG DAILY ORAL
     Route: 048
     Dates: start: 20020131
  2. ESTALIS (NORETHISTERONE) [Concomitant]

REACTIONS (3)
  - BRADYCARDIA [None]
  - DRY MOUTH [None]
  - HYPOTENSION [None]
